FAERS Safety Report 5548392-4 (Version None)
Quarter: 2007Q4

REPORT INFORMATION
  Report Type: 
  Country: None (occurrence: None)
  Receive Date: 20071206
  Receipt Date: 20071128
  Transmission Date: 20080405
  Serious: Yes (Hospitalization, Other)
  Sender: FDA-Public Use
  Company Number: 2006SP001411

PATIENT
  Sex: Male

DRUGS (2)
  1. VIRAFERONPEG [Suspect]
     Indication: HEPATITIS C
  2. REBETOL [Suspect]
     Indication: HEPATITIS C

REACTIONS (5)
  - ABDOMINAL PAIN [None]
  - ANGIOEDEMA [None]
  - DERMATITIS ALLERGIC [None]
  - PORPHYRIA [None]
  - SKIN FRAGILITY [None]
